FAERS Safety Report 9916190 (Version 1)
Quarter: 2014Q1

REPORT INFORMATION
  Report Type: Spontaneous
  Country: AU (occurrence: None)
  Receive Date: 20140219
  Receipt Date: 20140219
  Transmission Date: 20141002
  Serious: Yes (Hospitalization)
  Sender: FDA-Public Use
  Company Number: AU-ALKEM-000493

PATIENT
  Age: 56 Year
  Sex: Female

DRUGS (7)
  1. MYCOPHENOLATE MOFETIL(MYCOPHENOLATE MOFETIL) [Suspect]
     Indication: IMMUNOSUPPRESSION
     Dosage: 720.00000000-MG-2.0 0 TIMES PER-1.0DAYS
  2. PREDNISOLONE [Suspect]
     Indication: IMMUNOSUPPRESSION
     Dosage: 30.00000000-MG-1.00 TIME PER-1.0DAYS
  3. METHYLPREDNISOLONE [Suspect]
     Indication: IMMUNOSUPPRESSION
     Dosage: INTRAVENOUS (NOT OTHERWISE SPECIFIED)
     Route: 042
  4. TACROLIMUS [Suspect]
     Indication: IMMUNOSUPPRESSION
  5. BASILIXIMAB [Suspect]
     Indication: IMMUNOSUPPRESSION
  6. TRIMETHOPRIM SULFAMETHOXAZOLE(TRIMETHOPRIM SULFAMETHOXAZOLE) [Concomitant]
  7. VALGANCICLOVIR(VALGANCICLOVIR) [Concomitant]

REACTIONS (7)
  - Malacoplakia vesicae [None]
  - Renal transplant [None]
  - Escherichia infection [None]
  - Pseudomonas infection [None]
  - Klebsiella infection [None]
  - Kidney fibrosis [None]
  - Renal tubular atrophy [None]
